FAERS Safety Report 15459712 (Version 1)
Quarter: 2018Q4

REPORT INFORMATION
  Report Type: Spontaneous
  Country: US (occurrence: US)
  Receive Date: 20181003
  Receipt Date: 20181003
  Transmission Date: 20190204
  Serious: Yes (Hospitalization)
  Sender: FDA-Public Use
  Company Number: US-JNJFOC-20180840066

PATIENT
  Age: 76 Year
  Sex: Male

DRUGS (1)
  1. ERLEADA [Suspect]
     Active Substance: APALUTAMIDE
     Indication: PROSTATE CANCER
     Route: 065
     Dates: start: 20180609, end: 20180803

REACTIONS (6)
  - Cardiac disorder [Unknown]
  - Dizziness [Unknown]
  - Vomiting [Unknown]
  - Emergency care [Unknown]
  - Adverse drug reaction [Unknown]
  - Myocardial infarction [Unknown]

NARRATIVE: CASE EVENT DATE: 20180804
